FAERS Safety Report 23949595 (Version 1)
Quarter: 2024Q2

REPORT INFORMATION
  Report Type: Spontaneous
  Country: ES (occurrence: ES)
  Receive Date: 20240607
  Receipt Date: 20240607
  Transmission Date: 20240716
  Serious: Yes (Other)
  Sender: FDA-Public Use
  Company Number: ES-AMAROX PHARMA-AMR2024ES01556

PATIENT
  Age: 21 Year
  Sex: Male

DRUGS (1)
  1. ALPRAZOLAM [Suspect]
     Active Substance: ALPRAZOLAM
     Indication: Product used for unknown indication
     Dosage: 40 MILLIGRAM, ONCE A DAY
     Route: 048

REACTIONS (5)
  - Psychotic symptom [Unknown]
  - Schizophrenia [Unknown]
  - Overdose [Unknown]
  - Therapy cessation [Unknown]
  - Withdrawal syndrome [Unknown]
